FAERS Safety Report 7447897-9 (Version None)
Quarter: 2011Q2

REPORT INFORMATION
  Report Type: 
  Country: None (occurrence: None)
  Receive Date: 20110429
  Receipt Date: 20101227
  Transmission Date: 20111010
  Serious: No
  Sender: FDA-Public Use
  Company Number: US-ASTRAZENECA-2010SE01785

PATIENT
  Sex: Male

DRUGS (3)
  1. NEXIUM [Suspect]
     Route: 048
  2. EFFEXOR [Concomitant]
  3. PRILOSEC [Suspect]
     Route: 048

REACTIONS (6)
  - GASTROOESOPHAGEAL REFLUX DISEASE [None]
  - DRUG DOSE OMISSION [None]
  - ERUCTATION [None]
  - WRIST FRACTURE [None]
  - WRONG DRUG ADMINISTERED [None]
  - FALL [None]
